FAERS Safety Report 13472778 (Version 1)
Quarter: 2017Q2

REPORT INFORMATION
  Report Type: Spontaneous
  Country: US (occurrence: US)
  Receive Date: 20170424
  Receipt Date: 20170424
  Transmission Date: 20170830
  Serious: Yes (Other)
  Sender: FDA-Public Use
  Company Number: US-PFIZER INC-2017170540

PATIENT
  Age: 68 Year
  Sex: Female

DRUGS (4)
  1. GLIPIZDE [Concomitant]
     Active Substance: GLIPIZIDE
     Dosage: UNK
  2. BENICAR [Concomitant]
     Active Substance: OLMESARTAN MEDOXOMIL
     Dosage: 5 MG, QD
  3. JANUMET [Concomitant]
     Active Substance: METFORMIN HYDROCHLORIDE\SITAGLIPTIN PHOSPHATE
     Dosage: 50-100MG, BID
  4. EPIPEN [Suspect]
     Active Substance: EPINEPHRINE
     Indication: HYPERSENSITIVITY
     Dosage: UNK
     Dates: start: 201610, end: 201610

REACTIONS (7)
  - Wrong technique in product usage process [Recovered/Resolved]
  - Device use issue [Recovered/Resolved]
  - Injection site laceration [Recovered/Resolved]
  - Device failure [Recovered/Resolved]
  - Product quality issue [Recovered/Resolved]
  - Injection site haemorrhage [Recovered/Resolved]
  - Drug dose omission [Unknown]

NARRATIVE: CASE EVENT DATE: 201610
